FAERS Safety Report 7603049-0 (Version None)
Quarter: 2011Q3

REPORT INFORMATION
  Report Type: 
  Country: None (occurrence: None)
  Receive Date: 20110712
  Receipt Date: 20110712
  Transmission Date: 20111222
  Serious: Yes (Hospitalization)
  Sender: FDA-Public Use
  Company Number: None

PATIENT
  Sex: Male
  Weight: 95.254 kg

DRUGS (2)
  1. FLUOROURACIL [Suspect]
     Indication: COLON CANCER METASTATIC
     Dosage: 6930MG
     Route: 042
     Dates: start: 20110606, end: 20110608
  2. PRALATREXATE [Concomitant]
     Dosage: 273 MG
     Route: 042
     Dates: start: 20110606, end: 20110606

REACTIONS (6)
  - DIARRHOEA [None]
  - DEHYDRATION [None]
  - FATIGUE [None]
  - VOMITING [None]
  - NAUSEA [None]
  - ABDOMINAL PAIN [None]
